FAERS Safety Report 20083978 (Version 7)
Quarter: 2023Q4

REPORT INFORMATION
  Report Type: Other
  Country: US (occurrence: None)
  Receive Date: 20211118
  Receipt Date: 20231011
  Transmission Date: 20240109
  Serious: Yes (Hospitalization)
  Sender: FDA-Public Use
  Company Number: US-ROCHE-2655938

PATIENT
  Sex: Female

DRUGS (2)
  1. CELLCEPT [Suspect]
     Active Substance: MYCOPHENOLATE MOFETIL
     Indication: Sarcoidosis
     Dosage: 1500 MG, THREE TABLETS
     Route: 048
  2. CELLCEPT [Suspect]
     Active Substance: MYCOPHENOLATE MOFETIL
     Dosage: 1500 MG, TAKE 3 TABLETS BID
     Route: 048

REACTIONS (4)
  - COVID-19 [Unknown]
  - Dysphonia [Unknown]
  - Product prescribing error [Unknown]
  - Off label use [Unknown]
